FAERS Safety Report 25142608 (Version 4)
Quarter: 2025Q2

REPORT INFORMATION
  Report Type: Spontaneous
  Country: US (occurrence: US)
  Receive Date: 20250331
  Receipt Date: 20250508
  Transmission Date: 20250716
  Serious: No
  Sender: PFIZER
  Company Number: US-PFIZER INC-202500067233

PATIENT
  Age: 2 Year
  Sex: Female

DRUGS (1)
  1. GENOTROPIN [Suspect]
     Active Substance: SOMATROPIN

REACTIONS (8)
  - Illness [Unknown]
  - Device use error [Unknown]
  - Device material issue [Unknown]
  - Device leakage [Unknown]
  - Device breakage [Unknown]
  - Device mechanical issue [Unknown]
  - Product knowledge deficit [Unknown]
  - Drug dose omission by device [Unknown]

NARRATIVE: CASE EVENT DATE: 20250301
